FAERS Safety Report 5497151-X (Version None)
Quarter: 2007Q4

REPORT INFORMATION
  Report Type: 
  Country: None (occurrence: None)
  Receive Date: 20071025
  Receipt Date: 20070405
  Transmission Date: 20080405
  Serious: No
  Sender: FDA-Public Use
  Company Number: A0551448A

PATIENT
  Age: 68 Year
  Sex: Female
  Weight: 62.3 kg

DRUGS (3)
  1. ADVAIR DISKUS 100/50 [Suspect]
     Indication: CHRONIC OBSTRUCTIVE PULMONARY DISEASE
     Dosage: 1PUFF TWICE PER DAY
     Route: 055
     Dates: start: 20030103
  2. SYNTHROID [Concomitant]
     Route: 048
  3. METFORMIN [Concomitant]

REACTIONS (5)
  - BLOOD GLUCOSE INCREASED [None]
  - BRONCHITIS [None]
  - DYSPHONIA [None]
  - HEART RATE IRREGULAR [None]
  - NASOPHARYNGITIS [None]
